FAERS Safety Report 24616671 (Version 1)
Quarter: 2024Q4

REPORT INFORMATION
  Report Type: Spontaneous
  Country: HR (occurrence: HR)
  Receive Date: 20241114
  Receipt Date: 20241114
  Transmission Date: 20250115
  Serious: Yes (Death, Other)
  Sender: ALEXION PHARMACEUTICALS
  Company Number: HR-ASTRAZENECA-202410GLO027618HR

PATIENT

DRUGS (3)
  1. QUETIAPINE FUMARATE [Suspect]
     Active Substance: QUETIAPINE FUMARATE
     Indication: Suicide attempt
     Dosage: UNK
  2. CLOZAPINE [Suspect]
     Active Substance: CLOZAPINE
     Indication: Suicide attempt
     Dosage: UNK
  3. MIRTAZAPINE [Suspect]
     Active Substance: MIRTAZAPINE
     Indication: Suicide attempt
     Dosage: UNK

REACTIONS (4)
  - Suicide attempt [Fatal]
  - Altered state of consciousness [Fatal]
  - Incoherent [Unknown]
  - Unresponsive to stimuli [Unknown]
